FAERS Safety Report 7593971-6 (Version None)
Quarter: 2011Q3

REPORT INFORMATION
  Report Type: 
  Country: None (occurrence: None)
  Receive Date: 20110706
  Receipt Date: 20110622
  Transmission Date: 20111222
  Serious: Yes (Hospitalization, Disabling)
  Sender: FDA-Public Use
  Company Number: GB-MYLANLABS-2011S1013161

PATIENT
  Age: 65 Year
  Sex: Female

DRUGS (1)
  1. CITALOPRAM HYDROBROMIDE [Suspect]
     Indication: DEPRESSION
     Dates: start: 20101201, end: 20101201

REACTIONS (3)
  - CONFUSIONAL STATE [None]
  - POSTURING [None]
  - GAIT DISTURBANCE [None]
